FAERS Safety Report 17261292 (Version 1)
Quarter: 2020Q1

REPORT INFORMATION
  Report Type: Spontaneous
  Country: FR (occurrence: FR)
  Receive Date: 20200113
  Receipt Date: 20200113
  Transmission Date: 20200409
  Serious: Yes (Other)
  Sender: FDA-Public Use
  Company Number: FR-ACCORD-169450

PATIENT
  Age: 54 Year
  Sex: Male

DRUGS (13)
  1. CLONAZEPAM. [Suspect]
     Active Substance: CLONAZEPAM
     Indication: PRODUCT USED FOR UNKNOWN INDICATION
  2. BUPRENORPHINE. [Suspect]
     Active Substance: BUPRENORPHINE
     Dosage: UNK
     Route: 051
  3. BUPRENORPHINE. [Suspect]
     Active Substance: BUPRENORPHINE
     Dosage: UNK
     Route: 045
  4. COCAINE [Suspect]
     Active Substance: COCAINE
     Route: 045
     Dates: start: 1981
  5. DIAMORPHINE [Suspect]
     Active Substance: DIAMORPHINE
     Indication: PRODUCT USED FOR UNKNOWN INDICATION
     Route: 045
  6. MORPHINE [Suspect]
     Active Substance: MORPHINE
     Dosage: 50 MG, EVERY 15 DAYS
     Route: 042
  7. COCAINE [Suspect]
     Active Substance: COCAINE
     Dosage: 1-2 G, Q3W
     Route: 006
  8. COCAINE [Suspect]
     Active Substance: COCAINE
     Dosage: 1-2 G, Q3W
     Route: 042
  9. MORPHINE [Suspect]
     Active Substance: MORPHINE
     Dosage: 50 MG, EVERY 15 DAYS
     Route: 045
  10. MORPHINE [Suspect]
     Active Substance: MORPHINE
     Dosage: 50 MG, EVERY 15 DAYS
     Route: 051
  11. BROMAZEPAM [Suspect]
     Active Substance: BROMAZEPAM
     Indication: PRODUCT USED FOR UNKNOWN INDICATION
     Route: 048
     Dates: start: 1981
  12. ALCOHOL. [Suspect]
     Active Substance: ALCOHOL
     Indication: PRODUCT USED FOR UNKNOWN INDICATION
     Route: 048
  13. AMPHETAMINE SULFATE. [Suspect]
     Active Substance: AMPHETAMINE SULFATE
     Indication: PRODUCT USED FOR UNKNOWN INDICATION
     Route: 045
     Dates: start: 1981, end: 2001

REACTIONS (4)
  - Nasal septum deviation [Unknown]
  - Cluster headache [Not Recovered/Not Resolved]
  - Intentional product use issue [Unknown]
  - Substance abuse [Unknown]

NARRATIVE: CASE EVENT DATE: 1981
